FAERS Safety Report 11738675 (Version 1)
Quarter: 2015Q4

REPORT INFORMATION
  Report Type: Spontaneous
  Country: US (occurrence: US)
  Receive Date: 20151110
  Receipt Date: 20151110
  Transmission Date: 20160304
  Serious: No
  Sender: FDA-Public Use
  Company Number: US-ELI_LILLY_AND_COMPANY-US201111005018

PATIENT
  Age: 66 Year
  Sex: Female

DRUGS (4)
  1. CALCIUM [Concomitant]
     Active Substance: CALCIUM
  2. FORTEO [Suspect]
     Active Substance: TERIPARATIDE
     Indication: OSTEOPOROSIS
     Dosage: 20 UG, QD
     Route: 065
     Dates: start: 20111012
  3. FORTEO [Suspect]
     Active Substance: TERIPARATIDE
     Dosage: 20 UG, QD
  4. FORTEO [Suspect]
     Active Substance: TERIPARATIDE
     Dosage: 20 UG, QD

REACTIONS (11)
  - Bone density abnormal [Unknown]
  - Blood calcium increased [Unknown]
  - Eye inflammation [Unknown]
  - Vitamin D decreased [Recovering/Resolving]
  - Vitamin D decreased [Unknown]
  - Urine calcium increased [Not Recovered/Not Resolved]
  - Blood phosphorus decreased [Unknown]
  - Bone density decreased [Unknown]
  - Anxiety [Unknown]
  - Blood calcium increased [Recovered/Resolved]
  - Blood alkaline phosphatase decreased [Unknown]

NARRATIVE: CASE EVENT DATE: 201205
